FAERS Safety Report 9031698 (Version 3)
Quarter: 2013Q1

REPORT INFORMATION
  Report Type: Report from Study
  Country: DK (occurrence: DK)
  Receive Date: 20130124
  Receipt Date: 20130306
  Transmission Date: 20140127
  Serious: Yes (Hospitalization, Other)
  Sender: FDA-Public Use
  Company Number: DK-PFIZER INC-2013014019

PATIENT
  Age: 75 Year
  Sex: Female
  Weight: 65 kg

DRUGS (18)
  1. EPIRUBICIN HCL [Suspect]
     Indication: BREAST CANCER
     Dosage: 150 MG, Q3WK
     Route: 042
     Dates: start: 20121114, end: 20121205
  2. EPIRUBICIN HCL [Suspect]
     Dosage: 900 MG, Q3WK
     Route: 042
     Dates: start: 20121205
  3. EPIRUBICIN HCL [Suspect]
     Dosage: 85 MG, Q3WK
  4. FLUOROURACIL [Suspect]
     Indication: BREAST CANCER
     Dosage: 900 MG, Q3WK
     Route: 042
     Dates: start: 20121114, end: 20121205
  5. FLUOROURACIL [Suspect]
     Dosage: 900 MG, Q3WK
     Route: 042
     Dates: start: 20121205
  6. FLUOROURACIL [Suspect]
     Dosage: 500 MG, Q3WK
  7. CYCLOPHOSPHAMIDE [Suspect]
     Indication: BREAST CANCER
     Dosage: 900 MG, Q3WK
     Route: 042
     Dates: start: 20121114, end: 20121205
  8. CYCLOPHOSPHAMIDE [Suspect]
     Dosage: 900 MG, Q3WK
     Route: 042
     Dates: start: 20121205
  9. CYCLOPHOSPHAMIDE [Suspect]
     Dosage: 500 MG, Q3WK
  10. PEGFILGRASTIM [Suspect]
     Dosage: UNK
  11. PREDNISOLON [Concomitant]
     Dosage: 50 MG ON DAY 1
     Dates: start: 20121114
  12. PREDNISOLON [Concomitant]
     Dosage: 25 MG ON DAY 2 AND 3
  13. ONDANSETRON [Concomitant]
     Dosage: 16 MG ON DAY 1
     Dates: start: 20121114
  14. ONDANSETRON [Concomitant]
     Dosage: 8 MG ON DAY 2
  15. EMEND [Concomitant]
     Dosage: 120 MG ON DAY 1
     Dates: start: 20121114
  16. EMEND [Concomitant]
     Dosage: 80 MG ON DAY 2 AND 3
  17. EMPERAL [Concomitant]
     Dosage: 10 TO 20 MG  PRN
     Dates: start: 20121114
  18. IRON [Concomitant]
     Dosage: UNK

REACTIONS (2)
  - Pyrexia [Recovered/Resolved]
  - Febrile neutropenia [Recovered/Resolved]
